FAERS Safety Report 16074073 (Version 1)
Quarter: 2019Q1

REPORT INFORMATION
  Report Type: Report from Study
  Country: CO (occurrence: CO)
  Receive Date: 20190314
  Receipt Date: 20190314
  Transmission Date: 20190418
  Serious: Yes (Other)
  Sender: FDA-Public Use
  Company Number: PHHY2019CO056404

PATIENT
  Sex: Female
  Weight: 48 kg

DRUGS (2)
  1. FEMELLE [Concomitant]
     Indication: PRODUCT USED FOR UNKNOWN INDICATION
     Dosage: 3 MG, QD
     Route: 065
  2. GILENYA [Suspect]
     Active Substance: FINGOLIMOD HYDROCHLORIDE
     Indication: MULTIPLE SCLEROSIS
     Dosage: 0.5 MG, QD
     Route: 065
     Dates: start: 20161021

REACTIONS (2)
  - Human papilloma virus test positive [Not Recovered/Not Resolved]
  - Cervical dysplasia [Not Recovered/Not Resolved]
